FAERS Safety Report 9241978 (Version 2)
Quarter: 2013Q2

REPORT INFORMATION
  Report Type: Report from Study
  Country: JP (occurrence: JP)
  Receive Date: 20130419
  Receipt Date: 20130517
  Transmission Date: 20140414
  Serious: Yes (Other)
  Sender: FDA-Public Use
  Company Number: JP-NAPPMUNDI-DEU-2012-0009552

PATIENT
  Age: 65 Year
  Sex: Female

DRUGS (5)
  1. OXYCODONE HCL IR POWDER 0.5% [Suspect]
     Indication: PRODUCT USED FOR UNKNOWN INDICATION
     Dosage: 10 MG, DAILY
     Route: 048
     Dates: start: 20120729, end: 20120903
  2. OXYCODONE HCL IR POWDER 0.5% [Suspect]
     Dosage: 5 MG, DAILY
     Route: 048
     Dates: start: 20120711, end: 20120728
  3. OXYCODONE HCL PR TABLET [Suspect]
     Indication: PRODUCT USED FOR UNKNOWN INDICATION
     Dosage: 60 MG, DAILY
     Route: 048
     Dates: start: 20120717, end: 20120903
  4. OXYCODONE HCL PR TABLET [Suspect]
     Dosage: 10 MG, DAILY
     Route: 048
     Dates: start: 20120709
  5. OXYCODONE HYDROCHLORIDE [Suspect]
     Indication: PRODUCT USED FOR UNKNOWN INDICATION
     Dosage: 60 MG, DAILY
     Route: 042
     Dates: start: 20120904, end: 20120920

REACTIONS (5)
  - Delirium [Unknown]
  - Hepatic function abnormal [Recovering/Resolving]
  - Hypertension [Recovering/Resolving]
  - Anxiety disorder [Recovered/Resolved]
  - Insomnia [Unknown]
